FAERS Safety Report 10362942 (Version 1)
Quarter: 2014Q3

REPORT INFORMATION
  Report Type: Spontaneous
  Country: US (occurrence: None)
  Receive Date: 20140804
  Receipt Date: 20140804
  Transmission Date: 20150326
  Serious: Yes (Hospitalization)
  Sender: FDA-Public Use
  Company Number: None

PATIENT
  Age: 54 Year
  Sex: Female
  Weight: 163 kg

DRUGS (1)
  1. CEFEPIME [Suspect]
     Active Substance: CEFEPIME\CEFEPIME HYDROCHLORIDE
     Indication: CELLULITIS
     Route: 042

REACTIONS (4)
  - Somnolence [None]
  - Confusional state [None]
  - Hallucination, visual [None]
  - Neurotoxicity [None]

NARRATIVE: CASE EVENT DATE: 20140727
